FAERS Safety Report 8398594-7 (Version None)
Quarter: 2012Q2

REPORT INFORMATION
  Report Type: 
  Country: None (occurrence: None)
  Receive Date: 20120531
  Receipt Date: 20120523
  Transmission Date: 20120825
  Serious: Yes (Other)
  Sender: FDA-Public Use
  Company Number: US-BRISTOL-MYERS SQUIBB COMPANY-16619629

PATIENT
  Sex: Female

DRUGS (2)
  1. ENOXAPARIN [Suspect]
     Indication: DEEP VEIN THROMBOSIS
     Dates: start: 20120101
  2. COUMADIN [Suspect]

REACTIONS (3)
  - CONTUSION [None]
  - DEEP VEIN THROMBOSIS [None]
  - INJECTION SITE PAIN [None]
